FAERS Safety Report 22246745 (Version 2)
Quarter: 2023Q2

REPORT INFORMATION
  Report Type: Spontaneous
  Country: US (occurrence: US)
  Receive Date: 20230424
  Receipt Date: 20230627
  Transmission Date: 20230722
  Serious: Yes (Hospitalization)
  Sender: FDA-Public Use
  Company Number: US-PFIZER INC-PV202300018510

PATIENT
  Age: 74 Year
  Sex: Female

DRUGS (3)
  1. BRAFTOVI [Suspect]
     Active Substance: ENCORAFENIB
     Indication: Anaplastic thyroid cancer
     Dosage: 75 MG
  2. BRAFTOVI [Suspect]
     Active Substance: ENCORAFENIB
     Dosage: 225 MG, DAILY (STRENGTH: 75 MG, TAKEN 3 CAPSULES BY MOUTH DAILY)
     Route: 048
  3. MEKTOVI [Suspect]
     Active Substance: BINIMETINIB
     Indication: Anaplastic thyroid cancer
     Dosage: 15 MG

REACTIONS (3)
  - Feeling abnormal [Unknown]
  - Musculoskeletal stiffness [Unknown]
  - Off label use [Unknown]
